FAERS Safety Report 20962839 (Version 2)
Quarter: 2022Q3

REPORT INFORMATION
  Report Type: Report from Study
  Country: US (occurrence: US)
  Receive Date: 20220615
  Receipt Date: 20220705
  Transmission Date: 20221027
  Serious: No
  Sender: FDA-Public Use
  Company Number: US-TEVA-382248USA

PATIENT
  Sex: Female

DRUGS (2)
  1. COPAXONE [Suspect]
     Active Substance: GLATIRAMER ACETATE
     Indication: Product used for unknown indication
     Dosage: FORM STRENGTH: UNKNOWN
     Route: 065
     Dates: start: 20121213
  2. COPAXONE [Suspect]
     Active Substance: GLATIRAMER ACETATE
     Dosage: FORM STRENGTH: UNKNOWN
     Route: 065

REACTIONS (4)
  - Injection site reaction [Unknown]
  - Wrong technique in product usage process [Unknown]
  - Injection site urticaria [Unknown]
  - Injection site warmth [Unknown]
